FAERS Safety Report 9625007 (Version 1)
Quarter: 2013Q4

REPORT INFORMATION
  Report Type: Spontaneous
  Country: US (occurrence: US)
  Receive Date: 20131016
  Receipt Date: 20131016
  Transmission Date: 20140711
  Serious: Yes (Other)
  Sender: FDA-Public Use
  Company Number: US-JNJFOC-20131002040

PATIENT
  Sex: 0

DRUGS (1)
  1. BENADRYL ALLERGY COLD KAPGELS [Suspect]
     Indication: SUBSTANCE USE
     Route: 065

REACTIONS (6)
  - Intentional drug misuse [Unknown]
  - Disorientation [Unknown]
  - Off label use [Unknown]
  - Hallucination [Unknown]
  - Overdose [Unknown]
  - Speech disorder [Unknown]
